FAERS Safety Report 18156256 (Version 1)
Quarter: 2020Q3

REPORT INFORMATION
  Report Type: Spontaneous
  Country: US (occurrence: US)
  Receive Date: 20200815
  Receipt Date: 20200815
  Transmission Date: 20201103
  Serious: No
  Sender: FDA-Public Use
  Company Number: None

PATIENT
  Age: 56 Year
  Sex: Female
  Weight: 60.89 kg

DRUGS (22)
  1. FLAXSEED [Concomitant]
     Active Substance: FLAX SEED
  2. TRAZODONE [Concomitant]
     Active Substance: TRAZODONE HYDROCHLORIDE
  3. VITAMIN D3 [Concomitant]
     Active Substance: CHOLECALCIFEROL
  4. PROCHLORPERAZINE 10MG [Concomitant]
  5. LEVOTHYROXINE 100MCG [Concomitant]
     Active Substance: LEVOTHYROXINE
  6. PIQRAY [Suspect]
     Active Substance: ALPELISIB
     Indication: BREAST CANCER
     Route: 048
     Dates: start: 20200610
  7. ZYRTEC ALLERGY [Concomitant]
     Active Substance: CETIRIZINE HYDROCHLORIDE
  8. INCRUSE ELLIPTA 62.5MCG/INH [Concomitant]
  9. MORPHINE SULFATE ER 15MG [Concomitant]
     Active Substance: MORPHINE SULFATE
  10. NORCO [Concomitant]
     Active Substance: ACETAMINOPHEN\HYDROCODONE BITARTRATE
  11. PRILOSEC 40MG [Concomitant]
  12. CALCIUM + VITAMIN D3 [Concomitant]
     Active Substance: CALCIUM\CHOLECALCIFEROL
  13. CIPROFLOXACIN 0.2% [Concomitant]
  14. FLONASE ALLERGY 50MCG/ACT [Concomitant]
  15. ONDANSETRON 8MG [Concomitant]
     Active Substance: ONDANSETRON
  16. CYCLOBENZAPRINE 10MG [Concomitant]
     Active Substance: CYCLOBENZAPRINE
  17. HYDROCODONE?APAP 10?325MG [Concomitant]
  18. POTASSIUM CHLORIDE ER 20MEQ [Concomitant]
  19. SYMBICORT 160?4.5MCG/ACT [Concomitant]
  20. DIPHENHYDRAMINE 25MG [Concomitant]
     Active Substance: DIPHENHYDRAMINE
  21. LIDOCAINE 1% [Concomitant]
     Active Substance: LIDOCAINE
  22. LYRICA 200MG [Concomitant]

REACTIONS (1)
  - Rash [None]

NARRATIVE: CASE EVENT DATE: 20200815
